FAERS Safety Report 25302234 (Version 2)
Quarter: 2025Q2

REPORT INFORMATION
  Report Type: Spontaneous
  Country: US (occurrence: US)
  Receive Date: 20250512
  Receipt Date: 20250523
  Transmission Date: 20250716
  Serious: No
  Sender: ABBVIE
  Company Number: US-ABBVIE-6261177

PATIENT
  Age: 44 Year
  Sex: Female
  Weight: 68.038 kg

DRUGS (3)
  1. ARMOUR THYROID [Suspect]
     Active Substance: THYROID, PORCINE
     Indication: Central hypothyroidism
     Route: 048
     Dates: start: 2015, end: 202412
  2. ARMOUR THYROID [Suspect]
     Active Substance: THYROID, PORCINE
     Indication: Central hypothyroidism
     Route: 048
     Dates: start: 202501
  3. ARMOUR THYROID [Suspect]
     Active Substance: THYROID, PORCINE
     Indication: Central hypothyroidism
     Route: 048

REACTIONS (10)
  - Coeliac disease [Not Recovered/Not Resolved]
  - Feeling abnormal [Unknown]
  - Weight decreased [Not Recovered/Not Resolved]
  - Product size issue [Not Recovered/Not Resolved]
  - Peripheral coldness [Not Recovered/Not Resolved]
  - Product shape issue [Unknown]
  - Speech disorder [Not Recovered/Not Resolved]
  - Product odour abnormal [Not Recovered/Not Resolved]
  - Gait disturbance [Not Recovered/Not Resolved]
  - Therapeutic product effect decreased [Not Recovered/Not Resolved]

NARRATIVE: CASE EVENT DATE: 20210101
